FAERS Safety Report 8247137-7 (Version None)
Quarter: 2012Q1

REPORT INFORMATION
  Report Type: 
  Country: None (occurrence: None)
  Receive Date: 20120330
  Receipt Date: 20120321
  Transmission Date: 20120608
  Serious: Yes (Other)
  Sender: FDA-Public Use
  Company Number: TR-JNJFOC-20120312947

PATIENT
  Age: 31 Year
  Sex: Male

DRUGS (3)
  1. INVEGA [Suspect]
     Route: 048
  2. INVEGA [Suspect]
     Indication: SCHIZOPHRENIA
     Route: 048
  3. ZUCLOPENTHIXOL [Suspect]
     Indication: SCHIZOPHRENIA
     Route: 065

REACTIONS (4)
  - ANXIETY [None]
  - MENTAL DISORDER [None]
  - METABOLIC SYNDROME [None]
  - SCHIZOPHRENIA [None]
